FAERS Safety Report 4380708-7 (Version None)
Quarter: 2004Q2

REPORT INFORMATION
  Report Type: 
  Country: None (occurrence: None)
  Receive Date: 20040618
  Receipt Date: 20021204
  Transmission Date: 20050107
  Serious: Yes (Hospitalization)
  Sender: FDA-Public Use
  Company Number: PHBS2002JP14917

PATIENT
  Age: 18 Year
  Sex: Male
  Weight: 42 kg

DRUGS (4)
  1. TEGRETOL [Suspect]
     Dosage: 65 MG, BID
     Route: 048
     Dates: start: 19831201, end: 20011213
  2. DEPAKENE [Suspect]
     Dosage: 475 MG, BID
     Route: 048
     Dates: start: 19831201
  3. ALEVIATIN [Suspect]
     Dosage: 120 MG, BID
     Route: 048
     Dates: start: 19851101
  4. RIVOTRIL [Suspect]
     Dosage: 1.95 MG, BID
     Route: 048
     Dates: start: 19831201

REACTIONS (4)
  - ANOREXIA [None]
  - HEPATECTOMY [None]
  - HEPATIC ADENOMA [None]
  - PYREXIA [None]
